FAERS Safety Report 9628560 (Version 2)
Quarter: 2013Q4

REPORT INFORMATION
  Report Type: Report from Study
  Country: US (occurrence: US)
  Receive Date: 20131017
  Receipt Date: 20131030
  Transmission Date: 20140711
  Serious: Yes (Death)
  Sender: FDA-Public Use
  Company Number: PHEH2013US021577

PATIENT
  Age: 74 Year
  Sex: Male
  Weight: 73.92 kg

DRUGS (2)
  1. AFINITOR [Suspect]
     Indication: RENAL CANCER
     Dosage: 10 MG, QD
     Route: 048
     Dates: start: 201212, end: 201302
  2. ANTIHISTAMINES [Concomitant]

REACTIONS (1)
  - Malignant neoplasm progression [Fatal]
